FAERS Safety Report 21126214 (Version 2)
Quarter: 2022Q3

REPORT INFORMATION
  Report Type: Spontaneous
  Country: US (occurrence: US)
  Receive Date: 20220725
  Receipt Date: 20220909
  Transmission Date: 20221027
  Serious: Yes (Other)
  Sender: FDA-Public Use
  Company Number: US-GSKCCFUS-Case-01441508_AE-82721

PATIENT

DRUGS (1)
  1. BREO ELLIPTA [Suspect]
     Active Substance: FLUTICASONE FUROATE\VILANTEROL TRIFENATATE
     Indication: Product used for unknown indication
     Dosage: UNK
     Dates: start: 202206

REACTIONS (10)
  - Anaphylactic shock [Unknown]
  - Upper airway obstruction [Unknown]
  - Near death experience [Unknown]
  - Dyspnoea [Unknown]
  - Aphonia [Unknown]
  - Aphasia [Unknown]
  - Nervous system disorder [Unknown]
  - Productive cough [Unknown]
  - Vomiting projectile [Unknown]
  - Throat tightness [Unknown]

NARRATIVE: CASE EVENT DATE: 20220101
